FAERS Safety Report 21995876 (Version 1)
Quarter: 2023Q1

REPORT INFORMATION
  Report Type: Spontaneous
  Country: US (occurrence: US)
  Receive Date: 20230215
  Receipt Date: 20230215
  Transmission Date: 20230418
  Serious: Yes (Other)
  Sender: FDA-Public Use
  Company Number: US-BRISTOL-MYERS SQUIBB COMPANY-2023-021284

PATIENT
  Age: 44 Year
  Sex: Female

DRUGS (2)
  1. ONUREG [Suspect]
     Active Substance: AZACITIDINE
     Indication: Acute myeloid leukaemia
     Dosage: DOSE: 300MG; FREQ: DAYS 1-14
     Route: 048
     Dates: start: 202206
  2. ONUREG [Suspect]
     Active Substance: AZACITIDINE
     Dosage: DOSE: 200MG; FREQ: DAYS 1-14
     Route: 048

REACTIONS (2)
  - Nausea [Unknown]
  - Acute myeloid leukaemia recurrent [Unknown]

NARRATIVE: CASE EVENT DATE: 20230201
